FAERS Safety Report 10175090 (Version 2)
Quarter: 2014Q2

REPORT INFORMATION
  Report Type: Spontaneous
  Country: US (occurrence: US)
  Receive Date: 20140515
  Receipt Date: 20140612
  Transmission Date: 20141212
  Serious: No
  Sender: FDA-Public Use
  Company Number: US-009507513-1405USA002942

PATIENT
  Age: 58 Year
  Sex: Female

DRUGS (6)
  1. CLARITIN-D-24 [Suspect]
     Indication: SNEEZING
     Dosage: UNK, UNKNOWN
     Route: 048
     Dates: start: 20140401
  2. CLARITIN-D-24 [Suspect]
     Indication: NASAL CONGESTION
  3. CLARITIN-D-24 [Suspect]
     Indication: EYE PRURITUS
  4. WARFARIN [Concomitant]
     Indication: THROMBOSIS
     Dosage: UNK, UNKNOWN
  5. LISINOPRIL [Concomitant]
     Indication: BLOOD PRESSURE ABNORMAL
     Dosage: UNK, UNKNOWN
  6. AMLODIPINE [Concomitant]
     Indication: BLOOD PRESSURE ABNORMAL
     Dosage: UNK, UNKNOWN

REACTIONS (1)
  - Drug ineffective [Unknown]
